FAERS Safety Report 13749579 (Version 3)
Quarter: 2017Q4

REPORT INFORMATION
  Report Type: Spontaneous
  Country: JP (occurrence: JP)
  Receive Date: 20170713
  Receipt Date: 20171004
  Transmission Date: 20180320
  Serious: Yes (Other)
  Sender: FDA-Public Use
  Company Number: JP-PFIZER INC-2017303390

PATIENT
  Age: 70 Year
  Sex: Female
  Weight: 45.9 kg

DRUGS (3)
  1. TRAMAL [Suspect]
     Active Substance: TRAMADOL
     Indication: BLADDER PAIN
     Dosage: 50 MG, 3X/DAY
     Route: 048
     Dates: start: 20160509, end: 20160608
  2. LYRICA [Suspect]
     Active Substance: PREGABALIN
     Indication: BLADDER PAIN
     Dosage: 75 MG, 2X/DAY
     Route: 048
     Dates: start: 20160411, end: 20160508
  3. LYRICA [Suspect]
     Active Substance: PREGABALIN
     Dosage: 75 MG, 4X/DAY
     Route: 048
     Dates: start: 20160509, end: 20160529

REACTIONS (16)
  - Altered state of consciousness [Recovered/Resolved]
  - Blood sodium decreased [Not Recovered/Not Resolved]
  - Red blood cell count decreased [Not Recovered/Not Resolved]
  - Blood creatine increased [Not Recovered/Not Resolved]
  - Face injury [Recovered/Resolved]
  - Protein urine present [Not Recovered/Not Resolved]
  - Haemoglobin decreased [Not Recovered/Not Resolved]
  - Haematocrit decreased [Not Recovered/Not Resolved]
  - Product use in unapproved indication [Unknown]
  - C-reactive protein increased [Recovered/Resolved]
  - Fall [Recovered/Resolved]
  - Rib fracture [Recovered/Resolved]
  - Blood bilirubin decreased [Not Recovered/Not Resolved]
  - Product use issue [Unknown]
  - Head injury [Unknown]
  - Balance disorder [Unknown]

NARRATIVE: CASE EVENT DATE: 20160411
